FAERS Safety Report 10191231 (Version 1)
Quarter: 2014Q2

REPORT INFORMATION
  Report Type: Spontaneous
  Country: DE (occurrence: DE)
  Receive Date: 20140523
  Receipt Date: 20140523
  Transmission Date: 20141212
  Serious: Yes (Hospitalization)
  Sender: FDA-Public Use
  Company Number: DE-UCBSA-120961

PATIENT
  Age: 45 Year
  Sex: Male

DRUGS (1)
  1. CIMZIA [Suspect]
     Indication: SPONDYLITIS

REACTIONS (3)
  - Skin reaction [Unknown]
  - Cardiovascular disorder [Unknown]
  - Dyspnoea [Unknown]
